FAERS Safety Report 22249468 (Version 1)
Quarter: 2023Q2

REPORT INFORMATION
  Report Type: Spontaneous
  Country: US (occurrence: None)
  Receive Date: 20230424
  Receipt Date: 20230424
  Transmission Date: 20230722
  Serious: Yes (Hospitalization)
  Sender: FDA-Public Use
  Company Number: None

PATIENT
  Sex: Female

DRUGS (22)
  1. AMBRISENTAN [Suspect]
     Active Substance: AMBRISENTAN
     Indication: Pulmonary arterial hypertension
     Dosage: FREQUENCY : DAILY;?
     Route: 048
  2. SPIRIVA RESPIMAT [Concomitant]
     Active Substance: TIOTROPIUM BROMIDE
  3. ALBUTEROL [Concomitant]
     Active Substance: ALBUTEROL
  4. DESCOVY [Concomitant]
     Active Substance: EMTRICITABINE\TENOFOVIR ALAFENAMIDE FUMARATE
  5. TIVICAY [Concomitant]
     Active Substance: DOLUTEGRAVIR SODIUM
  6. DIAZEPAM [Concomitant]
     Active Substance: DIAZEPAM
  7. FLONASE ALLERGY RELIEF [Concomitant]
     Active Substance: FLUTICASONE PROPIONATE
  8. PROTONIX [Concomitant]
     Active Substance: PANTOPRAZOLE SODIUM
  9. PROCHLORPERAZINE MALEATE [Concomitant]
     Active Substance: PROCHLORPERAZINE MALEATE
  10. VITAMIN B12 [Concomitant]
     Active Substance: CYANOCOBALAMIN
  11. XIFAXAN [Concomitant]
     Active Substance: RIFAXIMIN
  12. RESTASIS [Concomitant]
     Active Substance: CYCLOSPORINE
  13. SPIRONOLACTONE [Concomitant]
     Active Substance: SPIRONOLACTONE
  14. PRAVASTATIN SODIUM [Concomitant]
     Active Substance: PRAVASTATIN SODIUM
  15. PERCOCET [Concomitant]
     Active Substance: ACETAMINOPHEN\OXYCODONE HYDROCHLORIDE
  16. CYMBALTA [Concomitant]
     Active Substance: DULOXETINE HYDROCHLORIDE
  17. LASIX [Concomitant]
     Active Substance: FUROSEMIDE
  18. CARDIZEM [Concomitant]
     Active Substance: DILTIAZEM HYDROCHLORIDE
  19. LIDOCAINE 5% [Concomitant]
     Active Substance: LIDOCAINE
  20. ELIQUIS [Concomitant]
     Active Substance: APIXABAN
  21. LIDODERM [Concomitant]
     Active Substance: LIDOCAINE
  22. DICLOFENAC SODIUM MICRONI [Concomitant]

REACTIONS (5)
  - Therapy interrupted [None]
  - Cardiac disorder [None]
  - Pulmonary hypertension [None]
  - Cardiac ablation [None]
  - Quality of life decreased [None]
